FAERS Safety Report 14028526 (Version 1)
Quarter: 2017Q3

REPORT INFORMATION
  Report Type: Spontaneous
  Country: US (occurrence: US)
  Receive Date: 20170930
  Receipt Date: 20170930
  Transmission Date: 20171128
  Serious: No
  Sender: FDA-Public Use
  Company Number: US-SA-2017SA050629

PATIENT
  Age: 34 Year
  Sex: Male

DRUGS (1)
  1. AUBAGIO [Suspect]
     Active Substance: TERIFLUNOMIDE
     Route: 065

REACTIONS (3)
  - Erythema nodosum [Unknown]
  - Peripheral swelling [Unknown]
  - Rash [Unknown]
